FAERS Safety Report 8816694 (Version 1)
Quarter: 2012Q4

REPORT INFORMATION
  Report Type: Spontaneous
  Country: US (occurrence: None)
  Receive Date: 20120928
  Receipt Date: 20120928
  Transmission Date: 20130627
  Serious: Yes (Other)
  Sender: FDA-Public Use
  Company Number: FK201202746

PATIENT
  Age: 26 Year
  Sex: Female

DRUGS (2)
  1. BUPIVACAINE [Suspect]
     Indication: NERVE BLOCK
  2. TRIAMCINOLONE [Suspect]
     Indication: NERVE BLOCK

REACTIONS (3)
  - Muscle necrosis [None]
  - Muscle atrophy [None]
  - Injection site reaction [None]
